FAERS Safety Report 25759223 (Version 1)
Quarter: 2025Q3

REPORT INFORMATION
  Report Type: Spontaneous
  Country: US (occurrence: US)
  Receive Date: 20250904
  Receipt Date: 20250904
  Transmission Date: 20251021
  Serious: No
  Sender: ALKEM
  Company Number: US-ALKEM LABORATORIES LIMITED-US-ALKEM-2025-03176

PATIENT
  Sex: Female

DRUGS (1)
  1. MESALAMINE EXTENDED-RELEASE [Suspect]
     Active Substance: MESALAMINE
     Indication: Product used for unknown indication
     Route: 065
     Dates: start: 20250215

REACTIONS (3)
  - Illness [Unknown]
  - Muscle spasms [Unknown]
  - Pain [Unknown]
